FAERS Safety Report 12798206 (Version 1)
Quarter: 2016Q3

REPORT INFORMATION
  Report Type: Spontaneous
  Country: US (occurrence: US)
  Receive Date: 20160930
  Receipt Date: 20160930
  Transmission Date: 20161109
  Serious: Yes (Hospitalization)
  Sender: FDA-Public Use
  Company Number: None

PATIENT
  Age: 49 Year
  Sex: Female

DRUGS (1)
  1. BOTOX [Suspect]
     Active Substance: ONABOTULINUMTOXINA
     Indication: MIGRAINE
     Dosage: 200 UNITS, Q3MONTHS
     Route: 030
     Dates: start: 20150214

REACTIONS (8)
  - Blood pressure decreased [None]
  - Eye pain [None]
  - Heart rate decreased [None]
  - Vision blurred [None]
  - Musculoskeletal stiffness [None]
  - White blood cell count increased [None]
  - Asthenia [None]
  - Pyrexia [None]

NARRATIVE: CASE EVENT DATE: 20160922
